FAERS Safety Report 14759474 (Version 12)
Quarter: 2022Q4

REPORT INFORMATION
  Report Type: Report from Study
  Country: CA (occurrence: CA)
  Receive Date: 20180413
  Receipt Date: 20221125
  Transmission Date: 20230113
  Serious: Yes (Other)
  Sender: FDA-Public Use
  Company Number: PHHY2018CA062608

PATIENT
  Age: 51 Year
  Sex: Male

DRUGS (10)
  1. COSENTYX [Suspect]
     Active Substance: SECUKINUMAB
     Indication: Ankylosing spondylitis
     Dosage: 150 MG, QMO
     Route: 058
     Dates: start: 20180201, end: 201903
  2. COSENTYX [Suspect]
     Active Substance: SECUKINUMAB
     Dosage: 150 MG, QMO
     Route: 058
     Dates: start: 20180601, end: 20180701
  3. COSENTYX [Suspect]
     Active Substance: SECUKINUMAB
     Dosage: UNK
     Route: 058
     Dates: start: 201807, end: 201903
  4. COSENTYX [Suspect]
     Active Substance: SECUKINUMAB
     Dosage: 150 MG, QMO
     Route: 058
     Dates: start: 20201216
  5. OLMESARTAN [Suspect]
     Active Substance: OLMESARTAN
     Indication: Product used for unknown indication
     Dosage: UNK
     Route: 048
  6. IBUPROFEN [Concomitant]
     Active Substance: IBUPROFEN
     Indication: Product used for unknown indication
     Dosage: UNK
     Route: 065
     Dates: start: 2000
  7. NAPROXEN [Concomitant]
     Active Substance: NAPROXEN
     Indication: Product used for unknown indication
     Dosage: UNK
     Route: 065
     Dates: start: 2010
  8. TIAPROFENIC ACID [Concomitant]
     Active Substance: TIAPROFENIC ACID
     Indication: Product used for unknown indication
     Dosage: UNK
     Route: 065
     Dates: start: 2010
  9. SULFASALAZINE [Concomitant]
     Active Substance: SULFASALAZINE
     Indication: Product used for unknown indication
     Dosage: UNK
     Route: 065
  10. PREDNISONE [Concomitant]
     Active Substance: PREDNISONE
     Indication: Product used for unknown indication
     Dosage: UNK
     Route: 065
     Dates: start: 2010, end: 202005

REACTIONS (35)
  - Malignant melanoma [Unknown]
  - Psoriatic arthropathy [Unknown]
  - Bladder discomfort [Unknown]
  - Neck pain [Recovering/Resolving]
  - Musculoskeletal stiffness [Unknown]
  - Influenza like illness [Unknown]
  - Urinary tract infection [Not Recovered/Not Resolved]
  - Headache [Recovering/Resolving]
  - Arthritis [Unknown]
  - Feeling abnormal [Unknown]
  - Musculoskeletal discomfort [Unknown]
  - Arthralgia [Unknown]
  - Fall [Unknown]
  - Osteoarthritis [Unknown]
  - Rotator cuff syndrome [Unknown]
  - Joint range of motion decreased [Unknown]
  - Iritis [Unknown]
  - Breast pain [Unknown]
  - Nipple pain [Unknown]
  - Burning sensation [Unknown]
  - Tenderness [Unknown]
  - Movement disorder [Unknown]
  - Tendon disorder [Unknown]
  - Spinal disorder [Unknown]
  - Pain in extremity [Unknown]
  - Abdominal distension [Unknown]
  - Muscle spasms [Unknown]
  - Respiratory disorder [Unknown]
  - Fatigue [Unknown]
  - Discomfort [Unknown]
  - Nasopharyngitis [Unknown]
  - Cough [Unknown]
  - Diarrhoea [Unknown]
  - Product supply issue [Unknown]
  - Drug ineffective [Unknown]

NARRATIVE: CASE EVENT DATE: 20180601
